FAERS Safety Report 17160013 (Version 1)
Quarter: 2019Q4

REPORT INFORMATION
  Report Type: Spontaneous
  Country: US (occurrence: US)
  Receive Date: 20191216
  Receipt Date: 20191216
  Transmission Date: 20200122
  Serious: No
  Sender: FDA-Public Use
  Company Number: US-SA-2019SA343094

PATIENT
  Sex: Female

DRUGS (1)
  1. ACT RESTORING ANTICAVITY FLUORIDE COOL MINT [Suspect]
     Active Substance: SODIUM FLUORIDE
     Dosage: UNK UNK, BID
     Route: 065

REACTIONS (1)
  - Tooth discolouration [Unknown]
